FAERS Safety Report 7750398-1 (Version None)
Quarter: 2011Q3

REPORT INFORMATION
  Report Type: 
  Country: None (occurrence: None)
  Receive Date: 20110914
  Receipt Date: 20110906
  Transmission Date: 20111222
  Serious: Yes (Other)
  Sender: FDA-Public Use
  Company Number: US-AMGEN-USASP2011045637

PATIENT
  Sex: Male

DRUGS (4)
  1. ENBREL [Suspect]
     Indication: PRODUCT USED FOR UNKNOWN INDICATION
     Dosage: UNK
     Dates: start: 20050101, end: 20110829
  2. VICTOZA [Concomitant]
     Indication: DIABETES MELLITUS
  3. ENBREL [Suspect]
  4. LAMISIL [Concomitant]

REACTIONS (6)
  - PROTEIN URINE PRESENT [None]
  - LUPUS-LIKE SYNDROME [None]
  - ANTINUCLEAR ANTIBODY POSITIVE [None]
  - PSORIASIS [None]
  - DRUG ERUPTION [None]
  - ERYTHEMA MULTIFORME [None]
